FAERS Safety Report 17668271 (Version 1)
Quarter: 2020Q2

REPORT INFORMATION
  Report Type: Spontaneous
  Country: FR (occurrence: FR)
  Receive Date: 20200415
  Receipt Date: 20200415
  Transmission Date: 20200713
  Serious: Yes (Other)
  Sender: FDA-Public Use
  Company Number: FR-AUROBINDO-AUR-APL-2018-034607

PATIENT
  Age: 27 Year
  Sex: Male
  Weight: 73 kg

DRUGS (4)
  1. AVASTIN [Suspect]
     Active Substance: BEVACIZUMAB
     Indication: ADENOCARCINOMA OF COLON
     Dosage: 362.5 MILLIGRAM (10?ME CURE)
     Route: 042
     Dates: start: 20180503, end: 20180503
  2. FLUOROURACIL. [Concomitant]
     Active Substance: FLUOROURACIL
     Indication: ADENOCARCINOMA OF COLON
     Dosage: 8800MG ET 4000MG SUR 48H
     Route: 042
     Dates: start: 20180503, end: 20180504
  3. IRINOTECAN [Suspect]
     Active Substance: IRINOTECAN
     Indication: ADENOCARCINOMA OF COLON
     Dosage: 9TH CURE, UNK
     Route: 042
     Dates: start: 201804, end: 201804
  4. OXALIPLATIN. [Suspect]
     Active Substance: OXALIPLATIN
     Indication: ADENOCARCINOMA OF COLON
     Dosage: 120 MILLIGRAM (10?ME CURE)
     Route: 042
     Dates: start: 20180503, end: 20180503

REACTIONS (2)
  - Gastrointestinal disorder [Recovered/Resolved]
  - Erythema [Recovered/Resolved]

NARRATIVE: CASE EVENT DATE: 201804
